FAERS Safety Report 12972082 (Version 1)
Quarter: 2016Q4

REPORT INFORMATION
  Report Type: Spontaneous
  Country: US (occurrence: US)
  Receive Date: 20161124
  Receipt Date: 20161124
  Transmission Date: 20170207
  Serious: No
  Sender: FDA-Public Use
  Company Number: US-ALVOGEN-2016-ALVOGEN-024382

PATIENT
  Sex: Male
  Weight: 95.45 kg

DRUGS (1)
  1. ZESTRIL [Suspect]
     Active Substance: LISINOPRIL
     Indication: BLOOD PRESSURE ABNORMAL
     Route: 048
     Dates: start: 20160507, end: 20160511

REACTIONS (3)
  - Burning sensation [Recovered/Resolved]
  - Malaise [Recovered/Resolved]
  - Nausea [Recovered/Resolved]
